FAERS Safety Report 5180006-8 (Version None)
Quarter: 2006Q4

REPORT INFORMATION
  Report Type: 
  Country: None (occurrence: None)
  Receive Date: 20061219
  Receipt Date: 20061018
  Transmission Date: 20070319
  Serious: No
  Sender: FDA-Public Use
  Company Number: US-AMGEN-KDL197465

PATIENT
  Sex: Female

DRUGS (2)
  1. ENBREL [Suspect]
     Indication: RHEUMATOID ARTHRITIS
     Route: 058
     Dates: start: 20060919
  2. PLAQUENIL [Concomitant]
     Dates: start: 20030101

REACTIONS (6)
  - ASTHENIA [None]
  - ERYTHEMA [None]
  - FEELING HOT [None]
  - HYPERVENTILATION [None]
  - NERVOUSNESS [None]
  - PAIN IN EXTREMITY [None]
